FAERS Safety Report 9225200 (Version 1)
Quarter: 2013Q2

REPORT INFORMATION
  Report Type: Spontaneous
  Country: SE (occurrence: SE)
  Receive Date: 20130411
  Receipt Date: 20130411
  Transmission Date: 20140414
  Serious: Yes (Other)
  Sender: FDA-Public Use
  Company Number: SE-JNJFOC-20130401723

PATIENT
  Age: 21 Year
  Sex: Female

DRUGS (4)
  1. REMICADE [Suspect]
     Indication: CROHN^S DISEASE
     Dosage: 100 MG VIALS
     Route: 042
     Dates: start: 20120315, end: 20121214
  2. PENTASA [Concomitant]
     Route: 065
  3. LORATADIN [Concomitant]
     Route: 065
  4. PREDNISOLON [Concomitant]
     Route: 065

REACTIONS (2)
  - Systemic lupus erythematosus [Unknown]
  - Arthralgia [Unknown]
